FAERS Safety Report 10689913 (Version 1)
Quarter: 2015Q1

REPORT INFORMATION
  Report Type: Spontaneous
  Country: GB (occurrence: GB)
  Receive Date: 20150105
  Receipt Date: 20150105
  Transmission Date: 20150720
  Serious: Yes (Life-Threatening)
  Sender: FDA-Public Use
  Company Number: GB-CIPLA LTD.-2014GB02992

PATIENT

DRUGS (7)
  1. SIMVASTATIN. [Suspect]
     Active Substance: SIMVASTATIN
     Dosage: 40 MG, QD (EVERY NIGHT)
  2. BISOPROLOL [Suspect]
     Active Substance: BISOPROLOL
     Dosage: 2.5 MG, QD
  3. REPAGLINIDE. [Suspect]
     Active Substance: REPAGLINIDE
     Indication: DIABETES MELLITUS
     Dosage: 3 MG, BID
  4. RAMIPRIL. [Suspect]
     Active Substance: RAMIPRIL
     Dosage: 2.5 MG, QD (EVERY NIGHT)
  5. CITALOPRAM [Suspect]
     Active Substance: CITALOPRAM HYDROBROMIDE
     Dosage: 40 MG, QD
  6. ASPIRIN. [Suspect]
     Active Substance: ASPIRIN
     Indication: CARDIOVASCULAR EVENT PROPHYLAXIS
     Dosage: 75 MG, QD (EVERY MORNING)
     Route: 048
     Dates: start: 20141210
  7. METFORMIN [Suspect]
     Active Substance: METFORMIN HYDROCHLORIDE
     Dosage: 500 MG, BID

REACTIONS (1)
  - Oesophageal perforation [Unknown]

NARRATIVE: CASE EVENT DATE: 20141210
